FAERS Safety Report 7138516-X (Version None)
Quarter: 2010Q4

REPORT INFORMATION
  Report Type: 
  Country: None (occurrence: None)
  Receive Date: 20101201
  Receipt Date: 20101201
  Transmission Date: 20110411
  Serious: No
  Sender: FDA-Public Use
  Company Number: None

PATIENT
  Age: 28 Year
  Sex: Female
  Weight: 58.9676 kg

DRUGS (1)
  1. AVELOX [Suspect]
     Indication: UPPER RESPIRATORY TRACT INFECTION
     Dosage: 1 DAILY PO
     Route: 048
     Dates: start: 20100212, end: 20100219

REACTIONS (7)
  - IRIDOCYCLITIS [None]
  - IRIS DISORDER [None]
  - IRIS TRANSILLUMINATION DEFECT [None]
  - MYDRIASIS [None]
  - NEURALGIA [None]
  - PHOTOPHOBIA [None]
  - VISUAL ACUITY REDUCED [None]
